FAERS Safety Report 4429311-0 (Version None)
Quarter: 2004Q3

REPORT INFORMATION
  Report Type: 
  Country: None (occurrence: None)
  Receive Date: 20040816
  Receipt Date: 20040730
  Transmission Date: 20050211
  Serious: Yes (Death)
  Sender: FDA-Public Use
  Company Number: 2004-DE-04185GD

PATIENT

DRUGS (1)
  1. COMBIVENT [Suspect]
     Indication: CHRONIC OBSTRUCTIVE AIRWAYS DISEASE
     Dosage: 144 MCG IPRATROPIUM BROMIDE AND 824 MCG ALBUTEROL (NR, FOUR TIMES DAILY), IH
     Route: 055

REACTIONS (4)
  - CHRONIC OBSTRUCTIVE AIRWAYS DISEASE EXACERBATED [None]
  - HEADACHE [None]
  - MYOCARDIAL INFARCTION [None]
  - PHARYNGOLARYNGEAL PAIN [None]
